FAERS Safety Report 4991027-X (Version None)
Quarter: 2006Q2

REPORT INFORMATION
  Report Type: 
  Country: None (occurrence: None)
  Receive Date: 20060503
  Receipt Date: 20060421
  Transmission Date: 20061013
  Serious: Yes (Hospitalization)
  Sender: FDA-Public Use
  Company Number: US-MERCK-0604USA03658

PATIENT
  Age: 56 Year
  Sex: Female
  Weight: 111 kg

DRUGS (7)
  1. VIOXX [Suspect]
     Indication: ARTHRITIS
     Route: 048
     Dates: start: 20000501, end: 20030701
  2. HYDROCODONE BITARTRATE [Concomitant]
     Route: 048
  3. VERAPAMIL HYDROCHLORIDE [Concomitant]
     Route: 048
  4. MEPHYTON [Concomitant]
     Route: 048
  5. SYNTHROID [Concomitant]
     Route: 048
  6. METFORMIN HYDROCHLORIDE [Concomitant]
     Route: 048
  7. DIAZEPAM [Concomitant]
     Route: 048

REACTIONS (2)
  - CEREBROVASCULAR ACCIDENT [None]
  - OVERDOSE [None]
